FAERS Safety Report 4479632-0 (Version None)
Quarter: 2004Q4

REPORT INFORMATION
  Report Type: 
  Country: None (occurrence: None)
  Receive Date: 20041018
  Receipt Date: 20041005
  Transmission Date: 20050328
  Serious: Yes (Hospitalization, Other)
  Sender: FDA-Public Use
  Company Number: 2004075233

PATIENT
  Age: 70 Year
  Sex: Male

DRUGS (6)
  1. ATARAX [Suspect]
     Indication: ILL-DEFINED DISORDER
     Dosage: 50 MG, ORAL
     Route: 048
     Dates: start: 20040901, end: 20040906
  2. TRIMEBUTINE (TRIMEBUTINE) [Concomitant]
  3. GELOX (ALUMINIUM HYDROXIDE, ALUMINIUM) [Concomitant]
  4. AMOXICILLIN [Concomitant]
  5. FLUOXETINE [Concomitant]
  6. SERENOA REPENS (SERENOA REPENS) [Concomitant]

REACTIONS (7)
  - AGITATION [None]
  - DELIRIUM [None]
  - DISORIENTATION [None]
  - EXCITABILITY [None]
  - LOGORRHOEA [None]
  - MANIA [None]
  - MENTAL DISORDER [None]
